FAERS Safety Report 10077644 (Version 1)
Quarter: 2014Q2

REPORT INFORMATION
  Report Type: Spontaneous
  Country: US (occurrence: US)
  Receive Date: 20140414
  Receipt Date: 20140414
  Transmission Date: 20141212
  Serious: No
  Sender: FDA-Public Use
  Company Number: US-BANPHARM-20142100

PATIENT
  Age: 52 Year
  Sex: Male
  Weight: 86.18 kg

DRUGS (2)
  1. ALEVE LIQUID GELS 220 MG [Suspect]
     Dosage: 2 DF, PRN,
     Route: 048
     Dates: start: 2013, end: 20140127
  2. LEVOXYL [Concomitant]

REACTIONS (1)
  - Rash [Not Recovered/Not Resolved]
